FAERS Safety Report 6619287-X (Version None)
Quarter: 2010Q1

REPORT INFORMATION
  Report Type: 
  Country: None (occurrence: None)
  Receive Date: 20100303
  Receipt Date: 20100216
  Transmission Date: 20100710
  Serious: Yes (Other)
  Sender: FDA-Public Use
  Company Number: 2010AL001148

PATIENT
  Age: 71 Year
  Sex: Male

DRUGS (1)
  1. SODIUM FLUORIDE TABLETS 1.0 MG (ATLLC) (SODIUM FLUORIDE TABLETS 1.0 MG [Suspect]
     Dosage: QD;

REACTIONS (1)
  - ANGIOEDEMA [None]
